FAERS Safety Report 17815384 (Version 1)
Quarter: 2020Q2

REPORT INFORMATION
  Report Type: Spontaneous
  Country: FR (occurrence: FR)
  Receive Date: 20200522
  Receipt Date: 20200522
  Transmission Date: 20200714
  Serious: Yes (Disabling)
  Sender: FDA-Public Use
  Company Number: FR-ACCORD-182810

PATIENT
  Age: 77 Year
  Sex: Female
  Weight: 123 kg

DRUGS (5)
  1. MIANSERIN [Suspect]
     Active Substance: MIANSERIN
     Indication: ANXIETY
     Route: 048
     Dates: start: 20191206, end: 20200115
  2. MIANSERIN [Suspect]
     Active Substance: MIANSERIN
     Indication: ANXIETY
     Route: 048
     Dates: start: 20200116
  3. REVOLADE [Suspect]
     Active Substance: ELTROMBOPAG
     Indication: THROMBOCYTOPENIA
     Dosage: 75 MG /D UNTIL 18/04/20 THEN DECREASING
     Route: 042
     Dates: start: 20191209
  4. SERESTA [Concomitant]
     Active Substance: OXAZEPAM
     Indication: ANXIETY
     Dosage: STRENGTH: 10 MG
     Route: 048
  5. LETROZOLE. [Suspect]
     Active Substance: LETROZOLE
     Indication: BREAST CANCER
     Route: 048
     Dates: start: 20200317

REACTIONS (2)
  - Condition aggravated [Not Recovered/Not Resolved]
  - Type 2 diabetes mellitus [Not Recovered/Not Resolved]

NARRATIVE: CASE EVENT DATE: 201912
